FAERS Safety Report 9521348 (Version 2)
Quarter: 2013Q4

REPORT INFORMATION
  Report Type: Spontaneous
  Country: US (occurrence: US)
  Receive Date: 20130913
  Receipt Date: 20131021
  Transmission Date: 20140711
  Serious: No
  Sender: FDA-Public Use
  Company Number: US-PFIZER INC-2013260407

PATIENT
  Sex: Female

DRUGS (6)
  1. FLECTOR [Suspect]
     Indication: PAIN
     Dosage: UNK
     Route: 062
  2. FLECTOR [Suspect]
  3. FLECTOR [Suspect]
  4. FLECTOR [Suspect]
  5. VICODIN [Suspect]
     Indication: PAIN
     Dosage: UNK
  6. NORCO [Suspect]
     Indication: PAIN
     Dosage: UNK

REACTIONS (4)
  - Expired drug administered [Unknown]
  - Drug effect incomplete [Unknown]
  - Pruritus [Unknown]
  - Feeling abnormal [Unknown]
